FAERS Safety Report 19455262 (Version 1)
Quarter: 2021Q2

REPORT INFORMATION
  Report Type: Other
  Country: US (occurrence: US)
  Receive Date: 20210623
  Receipt Date: 20210623
  Transmission Date: 20210717
  Serious: Yes (Other)
  Sender: FDA-Public Use
  Company Number: US-ROCHE-2752258

PATIENT
  Age: 43 Year
  Sex: Female

DRUGS (7)
  1. VALGANCICLOVIR. [Suspect]
     Active Substance: VALGANCICLOVIR
     Indication: TRICHODYSPLASIA SPINULOSA
     Route: 048
  2. TACROLIMUS. [Concomitant]
     Active Substance: TACROLIMUS
  3. MYCOPHENOLIC ACID. [Concomitant]
     Active Substance: MYCOPHENOLIC ACID
  4. MYFORTIC [Concomitant]
     Active Substance: MYCOPHENOLATE SODIUM
  5. PREDNISONE. [Concomitant]
     Active Substance: PREDNISONE
  6. CIDOFOVIR. [Concomitant]
     Active Substance: CIDOFOVIR
     Route: 061
  7. TRETINOIN. [Concomitant]
     Active Substance: TRETINOIN
     Route: 061

REACTIONS (2)
  - Myelosuppression [Unknown]
  - Neutropenia [Unknown]
